FAERS Safety Report 5877387-6 (Version None)
Quarter: 2008Q3

REPORT INFORMATION
  Report Type: 
  Country: None (occurrence: None)
  Receive Date: 20080908
  Receipt Date: 20080827
  Transmission Date: 20090109
  Serious: Yes (Hospitalization)
  Sender: FDA-Public Use
  Company Number: WAES 0804DEU00053

PATIENT
  Age: 76 Year
  Sex: Female

DRUGS (10)
  1. COZAAR [Suspect]
     Indication: CARDIAC FAILURE CONGESTIVE
     Route: 048
     Dates: start: 20031118, end: 20080327
  2. COZAAR [Suspect]
     Indication: CARDIAC FAILURE CONGESTIVE
     Route: 048
     Dates: start: 20080415
  3. SPIRONOLACTONE [Suspect]
     Indication: CARDIAC FAILURE CONGESTIVE
     Dates: start: 20041111, end: 20080327
  4. BISOPROLOL FUMARATE [Concomitant]
  5. DIGITOXIN INJ [Concomitant]
  6. ESCITALOPRAM [Concomitant]
  7. HYDROCHLOROTHIAZIDE [Concomitant]
  8. MELPERONE [Concomitant]
  9. METOPROLOL TARTRATE [Concomitant]
  10. PHENPROCOUMON [Concomitant]

REACTIONS (5)
  - CHOLELITHIASIS [None]
  - DEMENTIA [None]
  - HYPERKALAEMIA [None]
  - HYPONATRAEMIA [None]
  - PALPITATIONS [None]
